FAERS Safety Report 18387225 (Version 2)
Quarter: 2020Q4

REPORT INFORMATION
  Report Type: Spontaneous
  Country: DE (occurrence: DE)
  Receive Date: 20201015
  Receipt Date: 20201112
  Transmission Date: 20210114
  Serious: No
  Sender: FDA-Public Use
  Company Number: DE-PFIZER INC-2020390482

PATIENT
  Age: 49 Year
  Sex: Female

DRUGS (1)
  1. SAYANA [Suspect]
     Active Substance: MEDROXYPROGESTERONE

REACTIONS (3)
  - Incorrect dose administered [Unknown]
  - Device leakage [Unknown]
  - Device occlusion [Unknown]
